FAERS Safety Report 7691840-4 (Version None)
Quarter: 2011Q3

REPORT INFORMATION
  Report Type: 
  Country: None (occurrence: None)
  Receive Date: 20110818
  Receipt Date: 20110809
  Transmission Date: 20111222
  Serious: Yes (Hospitalization)
  Sender: FDA-Public Use
  Company Number: BR-ASTRAZENECA-2011SE48072

PATIENT
  Age: 66 Year
  Sex: Male

DRUGS (4)
  1. ALLOPURINOL [Concomitant]
     Route: 048
  2. CRESTOR [Suspect]
     Indication: DYSLIPIDAEMIA
     Route: 048
     Dates: start: 20050101
  3. DUSPATALIN [Concomitant]
     Indication: DIVERTICULUM INTESTINAL
     Route: 048
  4. NEXIUM [Suspect]
     Indication: DIVERTICULUM INTESTINAL
     Route: 048
     Dates: start: 20100901

REACTIONS (4)
  - DIVERTICULUM INTESTINAL [None]
  - DRUG PRESCRIBING ERROR [None]
  - INTESTINAL POLYP HAEMORRHAGE [None]
  - INTESTINAL POLYPECTOMY [None]
